FAERS Safety Report 12676469 (Version 3)
Quarter: 2017Q1

REPORT INFORMATION
  Report Type: Spontaneous
  Country: CH (occurrence: CH)
  Receive Date: 20160823
  Receipt Date: 20170309
  Transmission Date: 20170428
  Serious: Yes (Life-Threatening, Hospitalization, Disabling, Other)
  Sender: FDA-Public Use
  Company Number: CH-GLAXOSMITHKLINE-CH2016GSK121648

PATIENT
  Age: 76 Year
  Sex: Female
  Weight: 70 kg

DRUGS (22)
  1. JANUMET [Concomitant]
     Active Substance: METFORMIN HYDROCHLORIDE\SITAGLIPTIN PHOSPHATE
  2. PASPERTIN [Concomitant]
     Active Substance: METOCLOPRAMIDE HYDROCHLORIDE
  3. BETNESOL [Concomitant]
     Active Substance: BETAMETHASONE
  4. VITAMIN B12 [Concomitant]
     Active Substance: CYANOCOBALAMIN
  5. VENTOLIN [Concomitant]
     Active Substance: ALBUTEROL SULFATE
  6. PEMZEK [Concomitant]
  7. MONTELUKAST [Concomitant]
     Active Substance: MONTELUKAST SODIUM
  8. INSULIN NOVO RAPID [Concomitant]
  9. CALCIMAGON D3 FORTE [Concomitant]
  10. ESOMEP MUPS [Concomitant]
     Active Substance: OMEPRAZOLE
  11. STRUCTUM [Concomitant]
     Active Substance: SODIUM CHONDROITIN SULFATE
  12. TORASEMID [Concomitant]
     Active Substance: TORSEMIDE
  13. DIAMICRON MR [Concomitant]
     Active Substance: GLICLAZIDE
  14. MUCO MEPHA [Concomitant]
  15. TRAMADOL MEPHA [Concomitant]
     Active Substance: TRAMADOL HYDROCHLORIDE
  16. NUCALA [Suspect]
     Active Substance: MEPOLIZUMAB
     Indication: ASTHMA
     Dosage: 100 MG, UNK
     Route: 058
     Dates: start: 20160718
  17. BONVIVA [Concomitant]
     Active Substance: IBANDRONATE SODIUM
  18. CLOPIDOGREL [Concomitant]
     Active Substance: CLOPIDOGREL BISULFATE
  19. SYMBICORT TURBUHALER (BUDESONIDE + FORMOTEROL) [Concomitant]
  20. PRAMIPEXOLE. [Concomitant]
     Active Substance: PRAMIPEXOLE
  21. ALVESCO [Concomitant]
     Active Substance: CICLESONIDE
  22. SOLMUCOL [Concomitant]
     Active Substance: ACETYLCYSTEINE

REACTIONS (2)
  - Deep vein thrombosis [Unknown]
  - Cerebrovascular accident [Recovering/Resolving]

NARRATIVE: CASE EVENT DATE: 20160819
